FAERS Safety Report 9869258 (Version 1)
Quarter: 2014Q1

REPORT INFORMATION
  Report Type: Spontaneous
  Country: GB (occurrence: GB)
  Receive Date: 20140205
  Receipt Date: 20140205
  Transmission Date: 20141002
  Serious: Yes (Life-Threatening, Hospitalization, Other)
  Sender: FDA-Public Use
  Company Number: GB-RANBAXY-2014R1-77590

PATIENT
  Age: 81 Year
  Sex: Female
  Weight: 66.7 kg

DRUGS (1)
  1. CO-AMOXICLAV [Suspect]
     Indication: WOUND INFECTION
     Dosage: UNK
     Route: 042
     Dates: start: 20140110, end: 20140110

REACTIONS (1)
  - Anaphylactic reaction [Recovered/Resolved]
